FAERS Safety Report 7398008-X (Version None)
Quarter: 2011Q2

REPORT INFORMATION
  Report Type: 
  Country: None (occurrence: None)
  Receive Date: 20110406
  Receipt Date: 20110329
  Transmission Date: 20111010
  Serious: Yes (Death)
  Sender: FDA-Public Use
  Company Number: JP-AMGEN-JPNCT2011013095

PATIENT
  Age: 67 Year
  Sex: Male
  Weight: 59 kg

DRUGS (12)
  1. IRINOTECAN HYDROCHLORIDE [Concomitant]
     Indication: COLORECTAL CANCER
     Dosage: 100 MG, Q2WK
     Route: 041
     Dates: start: 20101028, end: 20110203
  2. ALOXI [Concomitant]
     Dosage: UNK
     Route: 042
  3. GLYBURIDE [Concomitant]
     Dosage: UNK
     Route: 048
  4. FLUOROURACIL [Concomitant]
     Indication: COLORECTAL CANCER
     Route: 040
     Dates: start: 20101028, end: 20110203
  5. PANITUMUMAB [Suspect]
     Indication: COLORECTAL CANCER
     Dosage: 6 MG/KG, Q2WK
     Route: 041
     Dates: start: 20101028, end: 20110203
  6. FLUOROURACIL [Concomitant]
     Route: 041
     Dates: start: 20101028, end: 20110203
  7. GLUFAST [Concomitant]
     Dosage: UNK
     Route: 048
  8. CORTICOSTEROIDS [Concomitant]
     Indication: PROPHYLAXIS
     Dosage: UNK
     Route: 065
  9. CALCIUM LEVOFOLINATE [Concomitant]
     Indication: COLORECTAL CANCER
     Route: 041
     Dates: start: 20101028, end: 20110203
  10. GLUCOBAY [Concomitant]
     Dosage: UNK
     Route: 048
  11. NELBIS [Concomitant]
     Dosage: UNK
     Route: 048
  12. BUSCOPAN [Concomitant]
     Dosage: UNK
     Route: 042

REACTIONS (2)
  - AORTIC DISSECTION [None]
  - DERMATITIS ACNEIFORM [None]
